FAERS Safety Report 4686276-4 (Version None)
Quarter: 2005Q2

REPORT INFORMATION
  Report Type: 
  Country: None (occurrence: None)
  Receive Date: 20050609
  Receipt Date: 20050608
  Transmission Date: 20051028
  Serious: Yes (Death)
  Sender: FDA-Public Use
  Company Number: DE-GLAXOSMITHKLINE-D0046770A

PATIENT

DRUGS (1)
  1. VIANI [Suspect]
     Route: 055

REACTIONS (2)
  - BRONCHOSPASM [None]
  - DYSPNOEA [None]
